FAERS Safety Report 8164467-8 (Version None)
Quarter: 2012Q1

REPORT INFORMATION
  Report Type: 
  Country: None (occurrence: None)
  Receive Date: 20120224
  Receipt Date: 20110404
  Transmission Date: 20120608
  Serious: Yes (Other)
  Sender: FDA-Public Use
  Company Number: US-ASTRAZENECA-2011SE14516

PATIENT
  Age: 70 Year
  Sex: Female

DRUGS (1)
  1. ARIMIDEX [Suspect]
     Route: 048

REACTIONS (4)
  - CEREBRAL THROMBOSIS [None]
  - BRAIN NEOPLASM [None]
  - HEPATIC NEOPLASM MALIGNANT [None]
  - DRUG INEFFECTIVE [None]
